FAERS Safety Report 7578117-2 (Version None)
Quarter: 2011Q2

REPORT INFORMATION
  Report Type: 
  Country: None (occurrence: None)
  Receive Date: 20110621
  Receipt Date: 20110614
  Transmission Date: 20111010
  Serious: Yes (Hospitalization)
  Sender: FDA-Public Use
  Company Number: 2011SP027565

PATIENT
  Age: 74 Year
  Sex: Female

DRUGS (6)
  1. FLUMETHOLON [Concomitant]
  2. BETAMETHASONE SODIUM PHOSPHATE [Suspect]
     Indication: PRODUCT USED FOR UNKNOWN INDICATION
  3. MYTEAR /00629201/ [Concomitant]
  4. HYALEIN (HYALURONATE SODIUM) [Suspect]
     Indication: ADENOVIRAL CONJUNCTIVITIS
     Dosage: OPH
     Route: 047
     Dates: start: 20090201
  5. LEVOFLOXACIN [Concomitant]
  6. RINDERON A [Concomitant]

REACTIONS (2)
  - KERATOPATHY [None]
  - TOXICITY TO VARIOUS AGENTS [None]
